FAERS Safety Report 13644673 (Version 1)
Quarter: 2017Q2

REPORT INFORMATION
  Report Type: Spontaneous
  Country: US (occurrence: US)
  Receive Date: 20170612
  Receipt Date: 20170612
  Transmission Date: 20170830
  Serious: No
  Sender: FDA-Public Use
  Company Number: US-ROCHE-1312813

PATIENT
  Sex: Male

DRUGS (3)
  1. NORCO [Concomitant]
     Active Substance: ACETAMINOPHEN\HYDROCODONE BITARTRATE
  2. XELODA [Suspect]
     Active Substance: CAPECITABINE
     Indication: COLON CANCER
     Dosage: THREE TABLETS BY MOUTH TWICE DAILY MONDAY TO FRIDAY EVERY WEEK FOR 5 WEEKS.
     Route: 048
     Dates: start: 20131106
  3. LOSARTAN. [Concomitant]
     Active Substance: LOSARTAN

REACTIONS (2)
  - Vomiting [Unknown]
  - Nausea [Unknown]
